FAERS Safety Report 16725981 (Version 1)
Quarter: 2019Q3

REPORT INFORMATION
  Report Type: Spontaneous
  Country: DE (occurrence: DE)
  Receive Date: 20190821
  Receipt Date: 20190821
  Transmission Date: 20191005
  Serious: Yes (Hospitalization, Other)
  Sender: FDA-Public Use
  Company Number: DE-ELI_LILLY_AND_COMPANY-DE201908007524

PATIENT
  Age: 84 Year
  Sex: Female
  Weight: 57 kg

DRUGS (6)
  1. ONDANSETRON [Suspect]
     Active Substance: ONDANSETRON
     Indication: NAUSEA
     Dosage: UNK, UNKNOWN
     Route: 042
     Dates: start: 20190806, end: 20190806
  2. DULOXETINE HYDROCHLORIDE. [Suspect]
     Active Substance: DULOXETINE HYDROCHLORIDE
     Indication: PAIN
     Dosage: 30 MG 1-0-0
     Route: 048
     Dates: start: 20190806, end: 20190807
  3. BUPRENORPHINE [BUPRENORPHINE HYDROCHLORIDE] [Concomitant]
     Indication: PAIN
     Dates: start: 2018
  4. FUROSEMID [FUROSEMIDE] [Concomitant]
     Active Substance: FUROSEMIDE
     Indication: CARDIAC FAILURE
  5. TORASEMID [Concomitant]
     Active Substance: TORSEMIDE
     Indication: CARDIAC FAILURE
  6. SPIRONOLACTON [Concomitant]
     Active Substance: SPIRONOLACTONE
     Indication: CARDIAC FAILURE

REACTIONS (6)
  - Unresponsive to stimuli [Recovered/Resolved]
  - Areflexia [Recovered/Resolved]
  - Apnoea [Recovered/Resolved]
  - Disturbance in attention [Recovered/Resolved]
  - Sopor [Recovered/Resolved]
  - Nausea [Unknown]

NARRATIVE: CASE EVENT DATE: 20190808
